FAERS Safety Report 7004247-X (Version None)
Quarter: 2010Q3

REPORT INFORMATION
  Report Type: 
  Country: None (occurrence: None)
  Receive Date: 20100920
  Receipt Date: 20100209
  Transmission Date: 20110219
  Serious: No
  Sender: FDA-Public Use
  Company Number: US-WYE-H13591210

PATIENT
  Sex: Male

DRUGS (1)
  1. PRISTIQ [Suspect]
     Indication: PARKINSON'S DISEASE
     Route: 048
     Dates: start: 20100101

REACTIONS (2)
  - HYPERHIDROSIS [None]
  - TREMOR [None]
